FAERS Safety Report 21812450 (Version 2)
Quarter: 2023Q1

REPORT INFORMATION
  Report Type: Spontaneous
  Country: US (occurrence: US)
  Receive Date: 20230103
  Receipt Date: 20230323
  Transmission Date: 20230417
  Serious: No
  Sender: FDA-Public Use
  Company Number: US-PFIZER INC-PV202200130045

PATIENT
  Age: 57 Year
  Sex: Female

DRUGS (1)
  1. XELJANZ XR [Suspect]
     Active Substance: TOFACITINIB CITRATE
     Indication: Psoriatic arthropathy
     Dosage: UNK

REACTIONS (6)
  - Drug ineffective [Unknown]
  - Alopecia [Unknown]
  - Urinary tract infection [Unknown]
  - Skin fragility [Unknown]
  - Increased tendency to bruise [Unknown]
  - Skin atrophy [Unknown]
